FAERS Safety Report 9781278 (Version 2)
Quarter: 2013Q4

REPORT INFORMATION
  Report Type: Spontaneous
  Country: US (occurrence: US)
  Receive Date: 20131224
  Receipt Date: 20131224
  Transmission Date: 20140711
  Serious: No
  Sender: FDA-Public Use
  Company Number: US-GILEAD-2010-0030718

PATIENT
  Age: 71 Year
  Sex: Female

DRUGS (13)
  1. CAYSTON [Suspect]
     Indication: CYSTIC FIBROSIS
     Route: 055
  2. PREDNISONE [Concomitant]
  3. AZITHROMYCIN [Concomitant]
  4. IBUPROFEN [Concomitant]
  5. ALBUTEROL [Concomitant]
  6. RESTORIL [Concomitant]
  7. VITAMIN K [Concomitant]
  8. ZESTRIL [Concomitant]
  9. HYDROCODONE [Concomitant]
  10. CREO 24 [Concomitant]
  11. OMEPRAZOLE [Concomitant]
  12. CALCIUM WITH VITAMIN D [Concomitant]
  13. MULTIVITAMIN [Concomitant]

REACTIONS (2)
  - Dyspnoea [Unknown]
  - Bronchospasm [Recovered/Resolved]
